FAERS Safety Report 4609762-1 (Version None)
Quarter: 2005Q1

REPORT INFORMATION
  Report Type: 
  Country: None (occurrence: None)
  Receive Date: 20050314
  Receipt Date: 20050225
  Transmission Date: 20050727
  Serious: Yes (Other)
  Sender: FDA-Public Use
  Company Number: 2005-DE-00778GD

PATIENT
  Age: 35 Year
  Sex: Male

DRUGS (4)
  1. HYDROCHLOROTHIAZIDE [Suspect]
     Indication: NEPHROGENIC DIABETES INSIPIDUS
     Dosage: NR
  2. INDOMETHACIN [Concomitant]
  3. POTASSIUM CHLORIDE [Concomitant]
  4. SUPPLEMENTATION (POTASSIUM) [Concomitant]

REACTIONS (12)
  - ALKALOSIS HYPOCHLORAEMIC [None]
  - BLOOD CHLORIDE DECREASED [None]
  - BLOOD OSMOLARITY DECREASED [None]
  - GASTRITIS [None]
  - HYPOKALAEMIA [None]
  - LABORATORY TEST ABNORMAL [None]
  - METABOLIC ALKALOSIS [None]
  - POLYDIPSIA [None]
  - POLYURIA [None]
  - SUBILEUS [None]
  - URINE OSMOLARITY INCREASED [None]
  - URINE OUTPUT DECREASED [None]
